FAERS Safety Report 9171800 (Version 1)
Quarter: 2013Q1

REPORT INFORMATION
  Report Type: Spontaneous
  Country: MX (occurrence: MX)
  Receive Date: 20130319
  Receipt Date: 20130319
  Transmission Date: 20140127
  Serious: Yes (Hospitalization)
  Sender: FDA-Public Use
  Company Number: MX-ROCHE-1202388

PATIENT
  Age: 73 Year
  Sex: Female

DRUGS (2)
  1. ZELBORAF [Suspect]
     Indication: METASTATIC MALIGNANT MELANOMA
     Route: 048
     Dates: start: 20121220, end: 20130220
  2. ZELBORAF [Suspect]
     Route: 048
     Dates: start: 20130220

REACTIONS (6)
  - Asthenia [Recovered/Resolved]
  - Pyrexia [Recovered/Resolved]
  - Atrial fibrillation [Unknown]
  - Synovitis [Recovered/Resolved]
  - Osteoarthritis [Recovered/Resolved]
  - Vomiting [Recovered/Resolved]
